FAERS Safety Report 14165470 (Version 2)
Quarter: 2017Q4

REPORT INFORMATION
  Report Type: Report from Study
  Country: JP (occurrence: JP)
  Receive Date: 20171107
  Receipt Date: 20171127
  Transmission Date: 20180321
  Serious: Yes (Hospitalization)
  Sender: FDA-Public Use
  Company Number: JP-EISAI MEDICAL RESEARCH-EC-2017-032829

PATIENT
  Age: 74 Year
  Sex: Male
  Weight: 49 kg

DRUGS (14)
  1. OXYCONTIN [Suspect]
     Active Substance: OXYCODONE HYDROCHLORIDE
     Indication: CANCER PAIN
     Route: 048
     Dates: start: 20171012
  2. NOVAMIN (PROCHLORPERAZINE MALEATE) [Concomitant]
     Active Substance: PROCHLORPERAZINE MALEATE
  3. LENVATINIB [Suspect]
     Active Substance: LENVATINIB
     Indication: RECTOSIGMOID CANCER
     Route: 048
     Dates: start: 20170907, end: 20170921
  4. LENVATINIB [Suspect]
     Active Substance: LENVATINIB
     Route: 048
     Dates: start: 20171012, end: 20171102
  5. AMLODIN [Concomitant]
     Active Substance: AMLODIPINE BESYLATE
  6. CANDESARTAN OD [Concomitant]
  7. OXINORM (OXYCODONE HYDROCHLORIDE) [Suspect]
     Active Substance: OXYCODONE HYDROCHLORIDE
     Indication: CANCER PAIN
     Route: 048
     Dates: start: 20171012
  8. BESOFTEN [Concomitant]
     Active Substance: PENTOSAN POLYSULFATE SODIUM
  9. MAGMITT [Concomitant]
     Active Substance: MAGNESIUM OXIDE
  10. LOXOPROFEN [Concomitant]
     Active Substance: LOXOPROFEN
  11. HIRUDOID [Concomitant]
     Active Substance: GLYCOSAMINOGLYCANS
  12. LENVATINIB [Suspect]
     Active Substance: LENVATINIB
     Route: 048
     Dates: start: 20170929, end: 20171004
  13. TAKECAB [Concomitant]
     Active Substance: VONOPRAZAN FUMURATE
  14. CALONAL [Concomitant]
     Active Substance: ACETAMINOPHEN

REACTIONS (2)
  - Decreased appetite [Not Recovered/Not Resolved]
  - Nausea [Not Recovered/Not Resolved]

NARRATIVE: CASE EVENT DATE: 20171102
